FAERS Safety Report 7894108-6 (Version None)
Quarter: 2011Q4

REPORT INFORMATION
  Report Type: 
  Country: None (occurrence: None)
  Receive Date: 20111104
  Receipt Date: 20111101
  Transmission Date: 20120403
  Serious: Yes (Other)
  Sender: FDA-Public Use
  Company Number: JP-ROXANE LABORATORIES, INC.-2011-RO-01570RO

PATIENT
  Age: 67 Year
  Sex: Male
  Weight: 50 kg

DRUGS (4)
  1. CIPRO [Suspect]
     Dosage: 300 MG
  2. SULFAMETHOXAZOLE AND TRIMETHOPRIM [Suspect]
     Indication: PROPHYLAXIS
  3. WARFARIN SODIUM [Suspect]
     Indication: DEEP VEIN THROMBOSIS
     Dosage: 1 MG
  4. FLUCONAZOLE [Suspect]
     Dosage: 200 MG

REACTIONS (2)
  - DRUG LEVEL INCREASED [None]
  - INTERNATIONAL NORMALISED RATIO INCREASED [None]
